FAERS Safety Report 22023173 (Version 3)
Quarter: 2023Q1

REPORT INFORMATION
  Report Type: Report from Study
  Country: CA (occurrence: CA)
  Receive Date: 20230223
  Receipt Date: 20230306
  Transmission Date: 20230418
  Serious: Yes (Death, Hospitalization)
  Sender: FDA-Public Use
  Company Number: CA-JNJFOC-20230230550

PATIENT
  Sex: Female

DRUGS (1)
  1. IMBRUVICA [Suspect]
     Active Substance: IBRUTINIB
     Indication: Central nervous system lymphoma
     Route: 048
     Dates: start: 20230203, end: 20230208

REACTIONS (6)
  - Central nervous system lymphoma [Fatal]
  - Vertigo [Unknown]
  - Off label use [Unknown]
  - Brain neoplasm malignant [Unknown]
  - Mass [Unknown]
  - Meningitis [Unknown]
